FAERS Safety Report 12851070 (Version 9)
Quarter: 2018Q2

REPORT INFORMATION
  Report Type: Spontaneous
  Country: US (occurrence: US)
  Receive Date: 20161017
  Receipt Date: 20180423
  Transmission Date: 20180711
  Serious: Yes (Other)
  Sender: FDA-Public Use
  Company Number: US-JNJFOC-20160706817

PATIENT
  Age: 85 Year
  Sex: Male

DRUGS (8)
  1. METFORMIN [Concomitant]
     Active Substance: METFORMIN HYDROCHLORIDE
  2. IMBRUVICA [Suspect]
     Active Substance: IBRUTINIB
     Indication: CHRONIC LYMPHOCYTIC LEUKAEMIA
     Route: 048
     Dates: start: 20160625
  3. KLONOPIN [Concomitant]
     Active Substance: CLONAZEPAM
  4. WARFARIN [Concomitant]
     Active Substance: WARFARIN
     Dosage: 2.5 MG, UNK
  5. CELEBREX [Concomitant]
     Active Substance: CELECOXIB
  6. CRESTOR [Concomitant]
     Active Substance: ROSUVASTATIN CALCIUM
  7. AMBIEN [Concomitant]
     Active Substance: ZOLPIDEM TARTRATE
  8. PARACETAMOL [Concomitant]
     Active Substance: ACETAMINOPHEN

REACTIONS (25)
  - Skin cancer [Not Recovered/Not Resolved]
  - Immunodeficiency [Not Recovered/Not Resolved]
  - Pain [Unknown]
  - Nodule [Not Recovered/Not Resolved]
  - Wound secretion [Not Recovered/Not Resolved]
  - Adverse drug reaction [Not Recovered/Not Resolved]
  - Eye infection [Not Recovered/Not Resolved]
  - Visual impairment [Not Recovered/Not Resolved]
  - Impaired healing [Not Recovered/Not Resolved]
  - Diarrhoea [Not Recovered/Not Resolved]
  - Wound infection staphylococcal [Not Recovered/Not Resolved]
  - Transient ischaemic attack [Not Recovered/Not Resolved]
  - Eyelid margin crusting [Not Recovered/Not Resolved]
  - Eye pain [Not Recovered/Not Resolved]
  - Urine flow decreased [Unknown]
  - Urinary tract infection [Not Recovered/Not Resolved]
  - Fatigue [Unknown]
  - Contusion [Unknown]
  - Intraocular pressure increased [Not Recovered/Not Resolved]
  - Skin ulcer [Unknown]
  - Atrial fibrillation [Unknown]
  - Rash [Unknown]
  - Dry eye [Not Recovered/Not Resolved]
  - Splenomegaly [Not Recovered/Not Resolved]
  - White blood cell count abnormal [Unknown]

NARRATIVE: CASE EVENT DATE: 201606
